FAERS Safety Report 8289561-2 (Version None)
Quarter: 2012Q2

REPORT INFORMATION
  Report Type: 
  Country: None (occurrence: None)
  Receive Date: 20120417
  Receipt Date: 20120413
  Transmission Date: 20120825
  Serious: Yes (Other)
  Sender: FDA-Public Use
  Company Number: PHEH2012US008049

PATIENT
  Age: 43 Year
  Sex: Female

DRUGS (1)
  1. GILENYA [Suspect]
     Indication: MULTIPLE SCLEROSIS
     Dosage: 0.5 MG, QD
     Route: 048
     Dates: start: 20110105, end: 20120411

REACTIONS (5)
  - LIGAMENT RUPTURE [None]
  - ARTHRITIS [None]
  - ROTATOR CUFF SYNDROME [None]
  - JOINT RANGE OF MOTION DECREASED [None]
  - ARTHRALGIA [None]
